FAERS Safety Report 24743789 (Version 2)
Quarter: 2024Q4

REPORT INFORMATION
  Report Type: Spontaneous
  Country: US (occurrence: US)
  Receive Date: 20241217
  Receipt Date: 20241219
  Transmission Date: 20250115
  Serious: Yes (Other)
  Sender: RANBAXY
  Company Number: US-SUN PHARMACEUTICAL INDUSTRIES LTD-2024R1-484715

PATIENT
  Sex: Female

DRUGS (2)
  1. BACLOFEN [Suspect]
     Active Substance: BACLOFEN
     Indication: Alcohol use disorder
     Dosage: UNK
     Route: 065
  2. NALTREXONE [Suspect]
     Active Substance: NALTREXONE
     Indication: Alcohol use disorder
     Dosage: UNK
     Route: 065

REACTIONS (1)
  - Drug-induced liver injury [Recovered/Resolved]
